FAERS Safety Report 24766122 (Version 4)
Quarter: 2025Q3

REPORT INFORMATION
  Report Type: Spontaneous
  Country: US (occurrence: US)
  Receive Date: 20241223
  Receipt Date: 20250926
  Transmission Date: 20251020
  Serious: No
  Sender: PFIZER
  Company Number: US-PFIZER INC-202400325298

PATIENT
  Age: 13 Year
  Sex: Male

DRUGS (2)
  1. GENOTROPIN [Suspect]
     Active Substance: SOMATROPIN
     Indication: Growth hormone deficiency
     Dosage: 1.7 MG, DAILY (1.6MG ALTERNATING WITH 1.8MG)
  2. GENOTROPIN [Suspect]
     Active Substance: SOMATROPIN
     Dosage: 1.7 MG, DAILY (1.6MG ALTERNATING WITH 1.8MG)

REACTIONS (4)
  - Feeling abnormal [Unknown]
  - Device breakage [Unknown]
  - Device mechanical issue [Unknown]
  - Product dose omission issue [Unknown]
